FAERS Safety Report 23704258 (Version 1)
Quarter: 2024Q2

REPORT INFORMATION
  Report Type: Spontaneous
  Country: TH (occurrence: TH)
  Receive Date: 20240404
  Receipt Date: 20240404
  Transmission Date: 20240716
  Serious: Yes (Hospitalization, Other)
  Sender: FDA-Public Use
  Company Number: TH-009507513-2404THA000275

PATIENT
  Age: 57 Year
  Sex: Male

DRUGS (5)
  1. PEMBROLIZUMAB [Suspect]
     Active Substance: PEMBROLIZUMAB
     Indication: Oesophageal carcinoma
     Dosage: START CIS + 5FU + PEMBROLIZUMAB
     Dates: start: 202307
  2. CISPLATIN [Suspect]
     Active Substance: CISPLATIN
     Indication: Oesophageal carcinoma
     Dosage: START CIS + 5FU + PEMBROLIZUMAB
     Dates: start: 202307
  3. FLUOROURACIL [Suspect]
     Active Substance: FLUOROURACIL
     Indication: Oesophageal carcinoma
     Dosage: START CIS + 5FU + PEMBROLIZUMAB
     Dates: start: 202307
  4. MORPHINE SULFATE [Concomitant]
     Active Substance: MORPHINE SULFATE
     Dosage: 40 MILLIGRAM, QD
  5. MORPHINE [Concomitant]
     Active Substance: MORPHINE
     Dosage: UNK, PRN

REACTIONS (7)
  - Upper gastrointestinal haemorrhage [Unknown]
  - Malignant neoplasm progression [Unknown]
  - Shock haemorrhagic [Unknown]
  - Atrial fibrillation [Unknown]
  - Intra-abdominal haematoma [Unknown]
  - Pyrexia [Unknown]
  - Pleural effusion [Unknown]

NARRATIVE: CASE EVENT DATE: 20230101
